FAERS Safety Report 7492343-2 (Version None)
Quarter: 2011Q2

REPORT INFORMATION
  Report Type: 
  Country: None (occurrence: None)
  Receive Date: 20110519
  Receipt Date: 20110516
  Transmission Date: 20111010
  Serious: Yes (Hospitalization, Other)
  Sender: FDA-Public Use
  Company Number: SK-PFIZER INC-2011089625

PATIENT
  Age: 72 Year
  Sex: Male

DRUGS (4)
  1. SUNITINIB MALATE [Suspect]
     Dosage: 25 MG, UNK
  2. BISOCARD [Concomitant]
  3. SUNITINIB MALATE [Suspect]
     Indication: RENAL CANCER
     Dosage: 50 MG, UNK
     Dates: start: 20070905
  4. TEBOKAN [Concomitant]

REACTIONS (4)
  - SKIN TOXICITY [None]
  - HAEMATOTOXICITY [None]
  - EYELID OEDEMA [None]
  - GASTROINTESTINAL TOXICITY [None]
